FAERS Safety Report 5719802-4 (Version None)
Quarter: 2008Q2

REPORT INFORMATION
  Report Type: 
  Country: None (occurrence: None)
  Receive Date: 20080423
  Receipt Date: 20071010
  Transmission Date: 20081010
  Serious: Yes (Other)
  Sender: FDA-Public Use
  Company Number: 237912

PATIENT
  Sex: Male

DRUGS (4)
  1. AVASTIN [Suspect]
     Indication: LUNG NEOPLASM MALIGNANT
     Dosage: 7.5 MG/KG, Q3W, INTRAVENOUS
     Route: 042
     Dates: start: 20060427
  2. CETUXIMAB (CETUXIMAB) [Concomitant]
  3. DIPHENHYDRAMINE (DIPHENHYDRAMINE NOS) [Concomitant]
  4. ACTIVASE [Concomitant]

REACTIONS (1)
  - PROTEINURIA [None]
